FAERS Safety Report 7484456-6 (Version None)
Quarter: 2011Q2

REPORT INFORMATION
  Report Type: 
  Country: None (occurrence: None)
  Receive Date: 20110410
  Receipt Date: 20110405
  Transmission Date: 20111010
  Serious: Yes (Other)
  Sender: FDA-Public Use
  Company Number: 2011028111

PATIENT
  Sex: Male
  Weight: 89 kg

DRUGS (2)
  1. AZITHROMYCIN [Concomitant]
  2. VIVAGLOBIN [Suspect]
     Indication: HYPOGAMMAGLOBULINAEMIA
     Dosage: 6.4 G 1X/WEEK, OVER 1 HOUR, SUBCUTANEOUS
     Route: 058
     Dates: start: 20070601, end: 20101201

REACTIONS (1)
  - PSORIASIS [None]
